FAERS Safety Report 10236310 (Version 2)
Quarter: 2014Q2

REPORT INFORMATION
  Report Type: Report from Study
  Country: US (occurrence: US)
  Receive Date: 20140613
  Receipt Date: 20140630
  Transmission Date: 20141212
  Serious: Yes (Other)
  Sender: FDA-Public Use
  Company Number: US-GILEAD-2014-0105078

PATIENT
  Sex: Male

DRUGS (2)
  1. RANOLAZINE [Suspect]
     Indication: ANGINA PECTORIS
     Dosage: 1000 MG, UNK
     Route: 065
  2. RANOLAZINE [Suspect]
     Indication: MICROVASCULAR CORONARY ARTERY DISEASE

REACTIONS (2)
  - Prostate cancer [Unknown]
  - Hypoacusis [Unknown]
